FAERS Safety Report 7598497-1 (Version None)
Quarter: 2011Q3

REPORT INFORMATION
  Report Type: 
  Country: None (occurrence: None)
  Receive Date: 20110708
  Receipt Date: 20110704
  Transmission Date: 20111222
  Serious: Yes (Hospitalization)
  Sender: FDA-Public Use
  Company Number: FR-ELI_LILLY_AND_COMPANY-FR201107000551

PATIENT
  Age: 73 Year
  Sex: Male
  Weight: 68 kg

DRUGS (3)
  1. ASPIRIN [Concomitant]
     Indication: ANGIOPLASTY
     Dosage: UNK
     Dates: start: 20110501
  2. NEXIUM [Concomitant]
     Indication: ULCER
     Dosage: UNK
     Dates: start: 20040101
  3. EFFIENT [Suspect]
     Indication: ANGIOPLASTY
     Dosage: UNK
     Route: 048
     Dates: start: 20110501

REACTIONS (3)
  - ANGINA PECTORIS [None]
  - ANAEMIA [None]
  - OFF LABEL USE [None]
